FAERS Safety Report 18585412 (Version 1)
Quarter: 2020Q4

REPORT INFORMATION
  Report Type: Spontaneous
  Country: CN (occurrence: CN)
  Receive Date: 20201207
  Receipt Date: 20201207
  Transmission Date: 20210114
  Serious: Yes (Other)
  Sender: FDA-Public Use
  Company Number: CN-PFIZER INC-2020473537

PATIENT
  Age: 57 Year
  Sex: Female
  Weight: 66 kg

DRUGS (4)
  1. CAMPTO [Suspect]
     Active Substance: IRINOTECAN
     Indication: COLON CANCER
     Dosage: 200 MG, 1X/DAY
     Route: 041
     Dates: start: 20200930, end: 20200930
  2. CAMPTO [Suspect]
     Active Substance: IRINOTECAN
     Dosage: 60 MG, 1X/DAY
     Route: 041
     Dates: start: 20200930, end: 20200930
  3. AVASTIN [Suspect]
     Active Substance: BEVACIZUMAB
     Indication: COLON CANCER
     Dosage: 300 MG, 1X/DAY
     Route: 041
     Dates: start: 20200930, end: 20200930
  4. RALTITREXED [Suspect]
     Active Substance: RALTITREXED
     Indication: COLON CANCER
     Dosage: 4 MG, 1X/DAY
     Route: 041
     Dates: start: 20200930, end: 20200930

REACTIONS (2)
  - Hepatic function abnormal [Recovering/Resolving]
  - Hepatic failure [Recovering/Resolving]

NARRATIVE: CASE EVENT DATE: 20201014
